FAERS Safety Report 9498389 (Version 5)
Quarter: 2013Q4

REPORT INFORMATION
  Report Type: Spontaneous
  Country: US (occurrence: US)
  Receive Date: 20130904
  Receipt Date: 20131212
  Transmission Date: 20140711
  Serious: Yes (Hospitalization, Other)
  Sender: FDA-Public Use
  Company Number: US-PFIZER INC-2009188480

PATIENT
  Age: 56 Year
  Sex: Male
  Weight: 83.9 kg

DRUGS (12)
  1. LIPITOR [Suspect]
     Indication: HYPERLIPIDAEMIA
     Dosage: 20 MG, UNK
     Dates: start: 20070219, end: 20070310
  2. LIPITOR [Suspect]
     Indication: CORONARY ARTERY DISEASE
     Dosage: 20 MG, 1X/DAY (QHS)
     Route: 048
     Dates: start: 20090218, end: 20090310
  3. ASPIRIN [Concomitant]
     Dosage: 325 MG, DAILY
  4. ASPIRIN [Concomitant]
     Dosage: 81 MG, UNK
  5. FISH OIL [Concomitant]
     Dosage: 1000 MG, 2X/DAY
     Route: 048
  6. WELCHOL [Concomitant]
     Dosage: UNK
  7. NIACIN [Concomitant]
     Dosage: UNK
  8. ZETIA [Concomitant]
     Dosage: 10 MG, DAILY
  9. CENTRUM [Concomitant]
     Dosage: UNK, DAILY
  10. PLAVIX [Concomitant]
     Dosage: 75 MG, DAILY
  11. NITROGLYCERIN [Concomitant]
     Indication: CHEST PAIN
     Dosage: UNK
     Route: 060
  12. CO-Q-10 [Concomitant]
     Dosage: 60 MG, DAILY

REACTIONS (15)
  - Coronary artery stenosis [Unknown]
  - Paralysis [Unknown]
  - Liver disorder [Unknown]
  - Myalgia [Unknown]
  - Arthralgia [Unknown]
  - Pain in extremity [Unknown]
  - Pain [Unknown]
  - Chest discomfort [Unknown]
  - Ischaemia [Unknown]
  - Insomnia [Unknown]
  - Night sweats [Unknown]
  - Diarrhoea [Unknown]
  - Blood creatine phosphokinase decreased [Recovered/Resolved]
  - Blood urea nitrogen/creatinine ratio increased [Unknown]
  - Musculoskeletal discomfort [Unknown]
